FAERS Safety Report 5694225-5 (Version None)
Quarter: 2008Q2

REPORT INFORMATION
  Report Type: 
  Country: None (occurrence: None)
  Receive Date: 20080403
  Receipt Date: 20080403
  Transmission Date: 20081010
  Serious: No
  Sender: FDA-Public Use
  Company Number: None

PATIENT
  Sex: Male
  Weight: 21.3191 kg

DRUGS (2)
  1. MUCINEX [Suspect]
     Indication: NASAL CONGESTION
     Dosage: 1.5-2 TSP. 1-2X A DAY PO
     Route: 048
     Dates: start: 20080315, end: 20080325
  2. MUCINEX [Suspect]
     Indication: PULMONARY CONGESTION
     Dosage: 1.5-2 TSP. 1-2X A DAY PO
     Route: 048
     Dates: start: 20080315, end: 20080325

REACTIONS (3)
  - BRONCHITIS [None]
  - POOR QUALITY DRUG ADMINISTERED [None]
  - THERAPEUTIC PRODUCT CONTAMINATION [None]
